FAERS Safety Report 5600208-3 (Version None)
Quarter: 2008Q1

REPORT INFORMATION
  Report Type: 
  Country: None (occurrence: None)
  Receive Date: 20080117
  Receipt Date: 20080117
  Transmission Date: 20080703
  Serious: Yes (Death)
  Sender: FDA-Public Use
  Company Number: None

PATIENT
  Age: 58 Year
  Sex: Male
  Weight: 87.0906 kg

DRUGS (1)
  1. ARIXTRA [Suspect]
     Indication: CARDIOLIPIN ANTIBODY POSITIVE
     Dosage: 7.5MG QD SQ
     Route: 058
     Dates: start: 20080108, end: 20080110

REACTIONS (3)
  - BRAIN HERNIATION [None]
  - CEREBRAL HAEMORRHAGE [None]
  - RESPIRATORY FAILURE [None]
